FAERS Safety Report 5844906-5 (Version None)
Quarter: 2008Q3

REPORT INFORMATION
  Report Type: 
  Country: None (occurrence: None)
  Receive Date: 20080812
  Receipt Date: 20080731
  Transmission Date: 20090109
  Serious: Yes (Hospitalization)
  Sender: FDA-Public Use
  Company Number: 100#01#2008-03886

PATIENT
  Age: 44 Year
  Sex: Male

DRUGS (1)
  1. CARBAMAZEPIN-RATIOPHARM RETARDTABLETTEN (CARBAMAZEPIN) [Suspect]
     Indication: EPILEPSY
     Dosage: 200 MG INCREASED TO 1200 MG DAILY, ORAL
     Route: 048
     Dates: start: 20070203

REACTIONS (1)
  - GRAND MAL CONVULSION [None]
